FAERS Safety Report 7716977-2 (Version None)
Quarter: 2011Q3

REPORT INFORMATION
  Report Type: 
  Country: None (occurrence: None)
  Receive Date: 20110829
  Receipt Date: 20110824
  Transmission Date: 20111222
  Serious: Yes (Life-Threatening, Hospitalization)
  Sender: FDA-Public Use
  Company Number: US-ASTRAZENECA-2011SE50781

PATIENT
  Age: 89 Year
  Sex: Female
  Weight: 13.6 kg

DRUGS (1)
  1. SEROQUEL [Suspect]
     Indication: DEMENTIA
     Route: 048

REACTIONS (2)
  - RESPIRATORY FAILURE [None]
  - OFF LABEL USE [None]
